FAERS Safety Report 14943518 (Version 1)
Quarter: 2018Q2

REPORT INFORMATION
  Report Type: Spontaneous
  Country: FR (occurrence: FR)
  Receive Date: 20180528
  Receipt Date: 20180528
  Transmission Date: 20180711
  Serious: Yes (Hospitalization, Other)
  Sender: FDA-Public Use
  Company Number: FR-TEVA-2018-FR-898196

PATIENT
  Age: 46 Year
  Sex: Female
  Weight: 88 kg

DRUGS (5)
  1. TASIGNA [Suspect]
     Active Substance: NILOTINIB
     Dosage: 800 MILLIGRAM DAILY; 400 MG, 2X/DAY
     Route: 065
     Dates: start: 20131128, end: 20131204
  2. CALCIUM FOLINATE [Concomitant]
     Active Substance: LEUCOVORIN CALCIUM
     Dosage: 25 MILLIGRAM DAILY; 25 MG, 4X/DAY FROM H36 OF METHOTREXATE TO BE ADJUSTED ACCORDING TO BLOOD METHOTR
     Dates: start: 201311
  3. METHOTREXATE. [Suspect]
     Active Substance: METHOTREXATE
     Indication: ACUTE LYMPHOCYTIC LEUKAEMIA
     Dosage: 1 G/M2 CORRESPONDING TO 1,9 MG ON DAY 1
     Dates: start: 20131128
  4. CYTARABINE EBEWE [Suspect]
     Active Substance: CYTARABINE
     Indication: ACUTE LYMPHOCYTIC LEUKAEMIA
     Dosage: 11400 MILLIGRAM DAILY; 5700 MG, 2X/DAY ON DAY 2 AND DAY 3
     Route: 042
     Dates: start: 20131128, end: 20131130
  5. TOBRADEX [Concomitant]
     Active Substance: DEXAMETHASONE\TOBRAMYCIN
     Dosage: 4 GTT DAILY; 1 GTT, 4X/DAY
     Route: 047

REACTIONS (7)
  - Renal failure [Recovered/Resolved]
  - Pyrexia [Recovered/Resolved]
  - Gait disturbance [Recovering/Resolving]
  - Encephalitis [Recovered/Resolved]
  - Febrile bone marrow aplasia [Recovered/Resolved]
  - Neuropathy peripheral [Recovering/Resolving]
  - Pain in extremity [Recovered/Resolved]

NARRATIVE: CASE EVENT DATE: 20131130
